FAERS Safety Report 18674343 (Version 3)
Quarter: 2021Q1

REPORT INFORMATION
  Report Type: Report from Study
  Country: IL (occurrence: IL)
  Receive Date: 20201229
  Receipt Date: 20210112
  Transmission Date: 20210419
  Serious: No
  Sender: FDA-Public Use
  Company Number: IL-KARYOPHARM-2020KPT001401

PATIENT
  Age: 60 Year
  Sex: Male

DRUGS (1)
  1. SELINEXOR [Suspect]
     Active Substance: SELINEXOR
     Indication: GLIOBLASTOMA
     Dosage: 80 MG, WEEKLY
     Dates: start: 20201105

REACTIONS (2)
  - Nausea [Not Recovered/Not Resolved]
  - Asthenia [Unknown]

NARRATIVE: CASE EVENT DATE: 202011
